FAERS Safety Report 7131595-5 (Version None)
Quarter: 2010Q4

REPORT INFORMATION
  Report Type: 
  Country: None (occurrence: None)
  Receive Date: 20101201
  Receipt Date: 20101130
  Transmission Date: 20110411
  Serious: Yes (Hospitalization, Other)
  Sender: FDA-Public Use
  Company Number: PHHO2010GB15967

PATIENT
  Sex: Female

DRUGS (9)
  1. AFINITOR [Suspect]
     Indication: ACUTE MYELOID LEUKAEMIA
     Dosage: UNK
     Route: 048
     Dates: start: 20100907, end: 20101009
  2. ARA-C [Suspect]
  3. DAUNORUBICIN [Suspect]
     Dosage: UNK
  4. ITRACONAZOLE [Concomitant]
  5. ACICLOVIR [Concomitant]
  6. NORETHISTERONE [Concomitant]
  7. ZOPICLONE [Concomitant]
  8. SANDO K [Concomitant]
  9. CODEINE [Concomitant]

REACTIONS (4)
  - BLOOD CREATINE PHOSPHOKINASE INCREASED [None]
  - DRUG TOXICITY [None]
  - HYPOKALAEMIA [None]
  - NEUTROPENIA [None]
